FAERS Safety Report 24637310 (Version 1)
Quarter: 2024Q4

REPORT INFORMATION
  Report Type: Spontaneous
  Country: JP (occurrence: JP)
  Receive Date: 20241119
  Receipt Date: 20241119
  Transmission Date: 20250114
  Serious: Yes (Death)
  Sender: VERICEL
  Company Number: JP-VERICEL-JP-VCEL-24-000399

PATIENT
  Age: 91 Year
  Sex: Male

DRUGS (2)
  1. BROMELAINS [Suspect]
     Active Substance: BROMELAINS
     Indication: Burns second degree
     Dosage: 20 GRAM, QD
     Route: 061
     Dates: start: 20241018, end: 20241018
  2. BROMELAINS [Suspect]
     Active Substance: BROMELAINS
     Indication: Burns third degree

REACTIONS (1)
  - Aortic aneurysm rupture [Fatal]

NARRATIVE: CASE EVENT DATE: 20241030
